FAERS Safety Report 6969039-6 (Version None)
Quarter: 2010Q3

REPORT INFORMATION
  Report Type: 
  Country: None (occurrence: None)
  Receive Date: 20100907
  Receipt Date: 20100824
  Transmission Date: 20110219
  Serious: Yes (Hospitalization)
  Sender: FDA-Public Use
  Company Number: US-MYLANLABS-2010S1015376

PATIENT
  Age: 55 Year
  Sex: Male

DRUGS (4)
  1. CITALOPRAM HYDROBROMIDE [Suspect]
     Route: 065
  2. VERAPAMIL HCL [Concomitant]
     Indication: HYPERTENSION
     Route: 065
  3. ATORVASTATIN [Concomitant]
     Route: 065
  4. METAXALONE [Concomitant]
     Route: 065

REACTIONS (2)
  - CEREBRAL VASOCONSTRICTION [None]
  - VASCULAR HEADACHE [None]
